FAERS Safety Report 14559336 (Version 1)
Quarter: 2018Q1

REPORT INFORMATION
  Report Type: Spontaneous
  Country: ES (occurrence: ES)
  Receive Date: 20180221
  Receipt Date: 20180221
  Transmission Date: 20180509
  Serious: Yes (Hospitalization)
  Sender: FDA-Public Use
  Company Number: ES-BAUSCH-BL-2018-004663

PATIENT
  Age: 43 Year
  Sex: Female

DRUGS (4)
  1. METHOTREXATE (METHOTREXATE SODIUM) [Suspect]
     Active Substance: METHOTREXATE SODIUM
     Indication: T-CELL LYMPHOMA STAGE IV
     Dosage: (5G/M2) IN TOTAL
     Route: 042
     Dates: start: 20171031, end: 20171031
  2. LEVOFLOXACINO [Suspect]
     Active Substance: LEVOFLOXACIN
     Indication: ANTIBIOTIC PROPHYLAXIS
     Dosage: OCCASIONAL; IF NEED
     Route: 048
     Dates: start: 20171108, end: 20171112
  3. ACICLOVIR [Suspect]
     Active Substance: ACYCLOVIR
     Indication: ANTIVIRAL PROPHYLAXIS
     Dosage: 800MG 1 DAILY COMPASS (REDUCED TO 250 DAILY)
     Route: 048
     Dates: start: 20171011
  4. SEPTRIN FORTE [Suspect]
     Active Substance: SULFAMETHOXAZOLE\TRIMETHOPRIM
     Indication: PROPHYLAXIS
     Dosage: 800/160 MG, 1 TABLET EVERY 12 HOURS, 2 DAYS A WEEK
     Route: 048
     Dates: start: 20171007, end: 20171112

REACTIONS (1)
  - Stevens-Johnson syndrome [Recovering/Resolving]

NARRATIVE: CASE EVENT DATE: 20171111
